FAERS Safety Report 9481908 (Version 1)
Quarter: 2013Q3

REPORT INFORMATION
  Report Type: Spontaneous
  Country: US (occurrence: None)
  Receive Date: 20130823
  Receipt Date: 20130823
  Transmission Date: 20140515
  Serious: Yes (Other)
  Sender: FDA-Public Use
  Company Number: IPC201308-000336

PATIENT
  Age: 54 Year
  Sex: Female
  Weight: 86.17 kg

DRUGS (9)
  1. HYDROCHLOROTHIAZIDE [Suspect]
     Indication: DIURETIC THERAPY
  2. METOPROLOL TARTRATE [Suspect]
     Indication: DIURETIC THERAPY
  3. PROTONIX [Suspect]
     Indication: RESTLESS LEGS SYNDROME
  4. LYRICA [Suspect]
     Indication: RESTLESS LEGS SYNDROME
  5. ZOLOFT [Suspect]
  6. XYZAL [Concomitant]
  7. ALEVE (NAPROXEN SODIUM) [Concomitant]
  8. PANTOPRAZOLE (PANTOPRAZOLE SODIUM SESQUIHYDRATE) [Concomitant]
  9. SERTRALINE (SERTRALINE) [Concomitant]

REACTIONS (11)
  - Pain [None]
  - Urticaria [None]
  - Feeling abnormal [None]
  - Atrophy [None]
  - Muscle twitching [None]
  - Insomnia [None]
  - Local swelling [None]
  - Local swelling [None]
  - Therapy cessation [None]
  - Product label issue [None]
  - Drug effect decreased [None]
